FAERS Safety Report 19711856 (Version 1)
Quarter: 2021Q3

REPORT INFORMATION
  Report Type: Spontaneous
  Country: US (occurrence: US)
  Receive Date: 20210817
  Receipt Date: 20210817
  Transmission Date: 20211014
  Serious: Yes (Other)
  Sender: FDA-Public Use
  Company Number: US-GLAXOSMITHKLINE-US2021GSK172985

PATIENT
  Sex: Female

DRUGS (4)
  1. RANITIDINE. [Suspect]
     Active Substance: RANITIDINE
     Indication: ANXIETY
     Dosage: 25 MG
     Route: 065
     Dates: start: 201901, end: 202102
  2. ZANTAC [Suspect]
     Active Substance: RANITIDINE HYDROCHLORIDE
     Indication: ANXIETY
     Dosage: 25 MG
     Route: 065
     Dates: start: 201901, end: 202103
  3. RANITIDINE. [Suspect]
     Active Substance: RANITIDINE
     Indication: ANXIETY
     Dosage: 25 MG
     Route: 065
     Dates: start: 201901, end: 202102
  4. ZANTAC [Suspect]
     Active Substance: RANITIDINE HYDROCHLORIDE
     Indication: ANXIETY
     Dosage: 25 MG
     Route: 065
     Dates: start: 201901, end: 202103

REACTIONS (1)
  - Breast cancer [Unknown]
